FAERS Safety Report 14496750 (Version 1)
Quarter: 2018Q1

REPORT INFORMATION
  Report Type: Spontaneous
  Country: US (occurrence: US)
  Receive Date: 20180206
  Receipt Date: 20180206
  Transmission Date: 20180509
  Serious: No
  Sender: FDA-Public Use
  Company Number: None

PATIENT
  Age: 70 Year
  Sex: Female
  Weight: 49.9 kg

DRUGS (9)
  1. LIPITOR [Concomitant]
     Active Substance: ATORVASTATIN CALCIUM
  2. TRINTELLIX [Suspect]
     Active Substance: VORTIOXETINE HYDROBROMIDE
     Indication: DEPRESSION
     Dosage: 1 PILL/DAY 1 MOUTH
     Route: 048
     Dates: start: 20171220, end: 20180107
  3. REMERON [Concomitant]
     Active Substance: MIRTAZAPINE
  4. VITIMAN C [Concomitant]
  5. TRINTELLIX [Suspect]
     Active Substance: VORTIOXETINE HYDROBROMIDE
     Indication: ANXIETY
     Dosage: 1 PILL/DAY 1 MOUTH
     Route: 048
     Dates: start: 20171220, end: 20180107
  6. SYNTHROID [Concomitant]
     Active Substance: LEVOTHYROXINE SODIUM
  7. CENTRUM [Concomitant]
     Active Substance: VITAMINS
  8. CQ10 [Concomitant]
     Active Substance: UBIDECARENONE
  9. ALOVERA [Concomitant]

REACTIONS (2)
  - Hypertension [None]
  - Palpitations [None]

NARRATIVE: CASE EVENT DATE: 20171230
